FAERS Safety Report 6438417-6 (Version None)
Quarter: 2009Q4

REPORT INFORMATION
  Report Type: 
  Country: None (occurrence: None)
  Receive Date: 20091109
  Receipt Date: 20091027
  Transmission Date: 20100525
  Serious: Yes (Other)
  Sender: FDA-Public Use
  Company Number: 2009-195232-NL

PATIENT
  Age: 46 Year
  Sex: Female
  Weight: 53.5 kg

DRUGS (3)
  1. DESOGESTREL AND ETHINYL ESTRADIOL [Suspect]
     Indication: CONTRACEPTION
     Dosage: PO
     Route: 048
     Dates: start: 19990101
  2. DERMACYD (NO PREF. NAME) [Suspect]
     Indication: VAGINAL DISORDER
     Dates: start: 20091024
  3. FRONTAL (CON.) [Concomitant]

REACTIONS (7)
  - ABDOMINAL PAIN [None]
  - EPILEPSY [None]
  - HEADACHE [None]
  - NEPHROLITHIASIS [None]
  - RENAL COLIC [None]
  - VAGINAL HAEMORRHAGE [None]
  - VULVOVAGINAL BURNING SENSATION [None]
